FAERS Safety Report 7503490-0 (Version None)
Quarter: 2011Q2

REPORT INFORMATION
  Report Type: 
  Country: None (occurrence: None)
  Receive Date: 20110525
  Receipt Date: 20110517
  Transmission Date: 20111010
  Serious: Yes (Hospitalization)
  Sender: FDA-Public Use
  Company Number: DE-ROCHE-713198

PATIENT
  Sex: Female
  Weight: 66 kg

DRUGS (6)
  1. BEVACIZUMAB [Suspect]
     Dosage: LAST DOSE PRIOR TO SAE: 22 JUN 2010; FORM: INFUSION
     Route: 042
     Dates: start: 20100413
  2. DEXAMETHASONE [Concomitant]
     Dosage: TDD: INTERMITTENT
     Dates: start: 20100413
  3. EMEND [Concomitant]
     Dosage: TDD: INTERMITTENT
     Dates: start: 20100413
  4. CYCLOPHOSPHAMIDE [Suspect]
     Dosage: LAST DOSE PRIOR TO SAE: 22 JUN 2010; FORM: INFUSION
     Route: 042
     Dates: start: 20100413
  5. EPIRUBICIN [Suspect]
     Dosage: LAST DOSE PRIOR TO SAE: 22 JUN 2010; FORM: INFUSION
     Route: 042
     Dates: start: 20100413
  6. KEVATRIL [Concomitant]
     Dosage: INTERMITTENT
     Dates: start: 20100413

REACTIONS (2)
  - GENERAL PHYSICAL HEALTH DETERIORATION [None]
  - STOMATITIS [None]
